FAERS Safety Report 13471285 (Version 1)
Quarter: 2017Q2

REPORT INFORMATION
  Report Type: Spontaneous
  Country: US (occurrence: US)
  Receive Date: 20170421
  Receipt Date: 20170421
  Transmission Date: 20170830
  Serious: No
  Sender: FDA-Public Use
  Company Number: None

PATIENT
  Sex: Female

DRUGS (1)
  1. CAPECITABINE 500 MG ACCORD [Suspect]
     Active Substance: CAPECITABINE
     Dosage: 1000 MG QAM AND QPM MON-FRI PO
     Route: 048
     Dates: start: 20161213

REACTIONS (6)
  - Therapy cessation [None]
  - Neuropathy peripheral [None]
  - Pain [None]
  - Musculoskeletal stiffness [None]
  - Peripheral swelling [None]
  - Hypoaesthesia [None]
